FAERS Safety Report 24965954 (Version 4)
Quarter: 2025Q4

REPORT INFORMATION
  Report Type: Spontaneous
  Country: US (occurrence: US)
  Receive Date: 20250213
  Receipt Date: 20251201
  Transmission Date: 20260118
  Serious: No
  Sender: IPSEN BIOPHARMACEUTICALS, INC.
  Company Number: US-IPSEN Group, Research and Development-2025-02876

PATIENT
  Age: 6 Year
  Sex: Female

DRUGS (3)
  1. BYLVAY [Suspect]
     Active Substance: ODEVIXIBAT
     Indication: Transgenerational epigenetic inheritance
     Dosage: SPRINKLE/MIX CONTENTS OF ONE 600 MCG ORAL PELLET WITH/OVER FOOD AND TAKE BY MOUTH ONCE DAILY WITH A MEAL
     Route: 048
     Dates: start: 20250217
  2. URSODIOL [Concomitant]
     Active Substance: URSODIOL
  3. TRIAMCINOLONE [Concomitant]
     Active Substance: TRIAMCINOLONE

REACTIONS (5)
  - Vomiting projectile [Unknown]
  - Abdominal pain upper [Not Recovered/Not Resolved]
  - Diarrhoea [Not Recovered/Not Resolved]
  - Epistaxis [Unknown]
  - Pruritus [Unknown]

NARRATIVE: CASE EVENT DATE: 20250514
